FAERS Safety Report 8263256 (Version 5)
Quarter: 2017Q1

REPORT INFORMATION
  Report Type: Report from Study
  Country: CA (occurrence: CA)
  Receive Date: 20111125
  Receipt Date: 20170119
  Transmission Date: 20170429
  Serious: Yes (Other)
  Sender: FDA-Public Use
  Company Number: PHHY2011CA102477

PATIENT
  Age: 86 Year
  Sex: Female

DRUGS (4)
  1. ACLASTA [Suspect]
     Active Substance: ZOLEDRONIC ACID
     Dosage: UNK
     Route: 041
     Dates: start: 20110105
  2. ACLASTA [Suspect]
     Active Substance: ZOLEDRONIC ACID
     Dosage: UNK
     Route: 041
     Dates: start: 20131217
  3. ACLASTA [Suspect]
     Active Substance: ZOLEDRONIC ACID
     Dosage: UNK
     Route: 041
     Dates: start: 20160114
  4. ACLASTA [Suspect]
     Active Substance: ZOLEDRONIC ACID
     Indication: OSTEOPOROSIS
     Dosage: 5 MG, UNK
     Route: 042
     Dates: start: 20100105

REACTIONS (7)
  - Blood pressure systolic increased [Unknown]
  - Blood chromium increased [Unknown]
  - Procedural complication [Unknown]
  - Osteoarthritis [Unknown]
  - Creatinine renal clearance decreased [Unknown]
  - Blood heavy metal increased [Unknown]
  - Mass [Unknown]

NARRATIVE: CASE EVENT DATE: 20111206
